FAERS Safety Report 6639936-X (Version None)
Quarter: 2010Q1

REPORT INFORMATION
  Report Type: 
  Country: None (occurrence: None)
  Receive Date: 20100318
  Receipt Date: 20080303
  Transmission Date: 20100710
  Serious: Yes (Other)
  Sender: FDA-Public Use
  Company Number: CHNY2008GB01114

PATIENT
  Sex: Male

DRUGS (4)
  1. ACETYLSALICYLIC ACID SRT [Suspect]
  2. IBUPROFEN (NCH) [Suspect]
  3. SEROXAT [Suspect]
  4. ALCOHOL [Suspect]

REACTIONS (4)
  - COMPLETED SUICIDE [None]
  - DRUG WITHDRAWAL SYNDROME [None]
  - OVERDOSE [None]
  - SUICIDE ATTEMPT [None]
